FAERS Safety Report 20224498 (Version 1)
Quarter: 2021Q4

REPORT INFORMATION
  Report Type: Report from Study
  Country: US (occurrence: US)
  Receive Date: 20211223
  Receipt Date: 20211223
  Transmission Date: 20220303
  Serious: Yes (Life-Threatening)
  Sender: FDA-Public Use
  Company Number: US-CELGENE-USA-20211206895

PATIENT
  Age: 40 Year
  Sex: Female

DRUGS (1)
  1. ZEPOSIA [Suspect]
     Active Substance: OZANIMOD HYDROCHLORIDE
     Indication: Multiple sclerosis
     Dosage: .46 MILLIGRAM
     Route: 048
     Dates: start: 20211212, end: 20211219

REACTIONS (5)
  - Swollen tongue [Unknown]
  - Dyspnoea [Unknown]
  - Acne [Unknown]
  - Lip swelling [Unknown]
  - Hypertension [Unknown]

NARRATIVE: CASE EVENT DATE: 20211218
